FAERS Safety Report 6734706-6 (Version None)
Quarter: 2010Q2

REPORT INFORMATION
  Report Type: 
  Country: None (occurrence: None)
  Receive Date: 20100519
  Receipt Date: 20100519
  Transmission Date: 20101027
  Serious: Yes (Other)
  Sender: FDA-Public Use
  Company Number: None

PATIENT
  Age: 70 Year
  Sex: Female
  Weight: 90.7194 kg

DRUGS (1)
  1. FLOVENT DISKUS 100 [Suspect]
     Indication: ASTHMA
     Dosage: 1 PUF 2X/DAY

REACTIONS (1)
  - UNEVALUABLE EVENT [None]
